FAERS Safety Report 23692182 (Version 1)
Quarter: 2024Q2

REPORT INFORMATION
  Report Type: Spontaneous
  Country: US (occurrence: US)
  Receive Date: 20240401
  Receipt Date: 20240401
  Transmission Date: 20240716
  Serious: Yes (Other)
  Sender: FDA-Public Use
  Company Number: US-TEVA-VS-3143855

PATIENT
  Age: 3 Month
  Sex: Male

DRUGS (2)
  1. AMOXICILLIN [Suspect]
     Active Substance: AMOXICILLIN
     Dosage: 200/5 MG/M
     Route: 048
  2. SUCROSE [Suspect]
     Active Substance: SUCROSE
     Route: 065

REACTIONS (1)
  - Haematochezia [Unknown]
